FAERS Safety Report 7204241-X (Version None)
Quarter: 2010Q4

REPORT INFORMATION
  Report Type: 
  Country: None (occurrence: None)
  Receive Date: 20101230
  Receipt Date: 20101228
  Transmission Date: 20110411
  Serious: Yes (Other)
  Sender: FDA-Public Use
  Company Number: JP-PFIZER INC-2010180384

PATIENT
  Age: 40 Year
  Sex: Female

DRUGS (5)
  1. CAMPTOSAR [Suspect]
     Indication: COLON CANCER
     Route: 041
  2. FLUOROURACIL [Suspect]
     Indication: COLON CANCER
     Route: 041
  3. FLUOROURACIL [Suspect]
     Route: 040
  4. CALCIUM LEVOFOLINATE [Suspect]
     Indication: COLON CANCER
     Route: 041
  5. ERBITUX [Suspect]
     Indication: COLON CANCER
     Route: 041

REACTIONS (4)
  - HYPERSENSITIVITY [None]
  - LEFT VENTRICULAR DYSFUNCTION [None]
  - PERICARDIAL EFFUSION [None]
  - SKIN DISORDER [None]
